FAERS Safety Report 5082231-3 (Version None)
Quarter: 2006Q3

REPORT INFORMATION
  Report Type: 
  Country: None (occurrence: None)
  Receive Date: 20060814
  Receipt Date: 20060727
  Transmission Date: 20061208
  Serious: Yes (Hospitalization)
  Sender: FDA-Public Use
  Company Number: 0602269US

PATIENT
  Age: 94 Year
  Sex: Female

DRUGS (5)
  1. ALPHAGAN [Suspect]
     Indication: GLAUCOMA
     Dosage: 2 GTT, BID, OPHTHALMIC
     Route: 047
  2. LASIX [Suspect]
     Indication: DRUG USE FOR UNKNOWN INDICATION
     Dates: end: 20060601
  3. COSOPT [Concomitant]
  4. LUMIGAN [Concomitant]
  5. POTASSIUM [Concomitant]

REACTIONS (12)
  - BLOOD POTASSIUM DECREASED [None]
  - CATARACT OPERATION [None]
  - CONFUSIONAL STATE [None]
  - DEHYDRATION [None]
  - DIZZINESS [None]
  - DRY MOUTH [None]
  - EYE IRRITATION [None]
  - HAEMATOCRIT INCREASED [None]
  - PHOTOPHOBIA [None]
  - RED BLOOD CELL COUNT INCREASED [None]
  - STOMACH DISCOMFORT [None]
  - VISION BLURRED [None]
